FAERS Safety Report 9432275 (Version 1)
Quarter: 2013Q3

REPORT INFORMATION
  Report Type: Report from Study
  Country: None (occurrence: AR)
  Receive Date: 20130731
  Receipt Date: 20130731
  Transmission Date: 20140515
  Serious: Yes (Other)
  Sender: FDA-Public Use
  Company Number: PHHY2013AR081122

PATIENT
  Sex: Female

DRUGS (2)
  1. DIOVAN D [Suspect]
     Indication: HYPERTENSION
     Dosage: UNK UKN, UNK
  2. DIOVAN D [Suspect]
     Dosage: 2 DF(160/12.5 MG), DAILY

REACTIONS (2)
  - Deafness [Not Recovered/Not Resolved]
  - Blood pressure increased [Recovering/Resolving]
